FAERS Safety Report 24618826 (Version 2)
Quarter: 2024Q4

REPORT INFORMATION
  Report Type: Spontaneous
  Country: US (occurrence: US)
  Receive Date: 20241114
  Receipt Date: 20241217
  Transmission Date: 20250115
  Serious: Yes (Other)
  Sender: ABBVIE
  Company Number: US-ABBVIE-6002048

PATIENT
  Age: 39 Year
  Sex: Male
  Weight: 115 kg

DRUGS (6)
  1. RINVOQ [Suspect]
     Active Substance: UPADACITINIB
     Indication: Colitis ulcerative
     Route: 048
  2. RINVOQ [Suspect]
     Active Substance: UPADACITINIB
     Indication: Colitis ulcerative
     Route: 048
     Dates: start: 20240902, end: 20241103
  3. ALLEGRA [Concomitant]
     Active Substance: FEXOFENADINE HYDROCHLORIDE
     Indication: Product used for unknown indication
     Route: 048
  4. MOTRIN [Concomitant]
     Active Substance: IBUPROFEN
     Indication: Product used for unknown indication
     Dosage: TIME INTERVAL: AS NECESSARY: DOSE:800
  5. PREDNISOLONE [Concomitant]
     Active Substance: PREDNISOLONE
     Indication: Product used for unknown indication
     Route: 048
  6. CARAFATE [Concomitant]
     Active Substance: SUCRALFATE
     Indication: Product used for unknown indication

REACTIONS (10)
  - Portal vein thrombosis [Recovering/Resolving]
  - Pain in extremity [Unknown]
  - Skin warm [Unknown]
  - Dyspnoea [Unknown]
  - Pleuritic pain [Unknown]
  - Ischaemic skin ulcer [Unknown]
  - Pallor [Unknown]
  - Paralysis [Unknown]
  - Peripheral swelling [Unknown]
  - Paraesthesia [Unknown]

NARRATIVE: CASE EVENT DATE: 20240101
